FAERS Safety Report 7644300-0 (Version None)
Quarter: 2011Q3

REPORT INFORMATION
  Report Type: 
  Country: None (occurrence: None)
  Receive Date: 20110729
  Receipt Date: 20110720
  Transmission Date: 20111222
  Serious: Yes (Hospitalization, Other)
  Sender: FDA-Public Use
  Company Number: PHHY2011BR66460

PATIENT
  Age: 70 Year
  Sex: Female

DRUGS (3)
  1. COMTAN [Suspect]
     Indication: PARKINSON'S DISEASE
     Dosage: 200 MG, UNK
  2. COMTAN [Suspect]
     Dosage: 200 MG, UNK
  3. PROLOPA [Concomitant]
     Dosage: UNK UKN, UNK

REACTIONS (4)
  - DEMENTIA [None]
  - AMNESIA [None]
  - DEMENTIA ALZHEIMER'S TYPE [None]
  - SPINAL DISORDER [None]
